FAERS Safety Report 8808125 (Version 2)
Quarter: 2012Q4

REPORT INFORMATION
  Report Type: 
  Country: US (occurrence: US)
  Receive Date: 20120925
  Receipt Date: 20120927
  Transmission Date: 20130627
  Serious: No
  Sender: FDA-Public Use
  Company Number: US-PFIZER INC-2012231572

PATIENT
  Age: 67 Year
  Sex: Male
  Weight: 75.28 kg

DRUGS (2)
  1. CHANTIX [Suspect]
     Indication: SMOKING CESSATION THERAPY
     Dosage: 1 mg, QD
     Dates: start: 20120918
  2. ENALAPRIL [Concomitant]
     Indication: BLOOD PRESSURE ABNORMAL
     Dosage: 10 mg, daily

REACTIONS (2)
  - Abnormal dreams [Unknown]
  - Feeling cold [Unknown]
